FAERS Safety Report 6307538-0 (Version None)
Quarter: 2009Q3

REPORT INFORMATION
  Report Type: 
  Country: None (occurrence: None)
  Receive Date: 20090811
  Receipt Date: 20090730
  Transmission Date: 20100115
  Serious: Yes (Hospitalization, Other)
  Sender: FDA-Public Use
  Company Number: 231848K08USA

PATIENT
  Age: 39 Year
  Sex: Female

DRUGS (8)
  1. REBIF [Suspect]
     Indication: MULTIPLE SCLEROSIS
     Dosage: 44 MCG, 3 IN 1 WEEKS, SUBCUTANEOUS
     Route: 058
     Dates: start: 20031024
  2. VITAMIN BE (RIBOFLAVIN /00154901/) [Concomitant]
  3. ALBUTEROL INHALER (SALBUTAMOL /00139501/) [Concomitant]
  4. TYLENOL [Concomitant]
  5. HYDROCODONE (HYDROCODONE) [Concomitant]
  6. TOPAMAX [Concomitant]
  7. ANTI-SEIZURE MEDICATION (ANTIPILEPTICS) [Concomitant]
  8. VITAMIN D (VITAMIN D NOS) [Concomitant]

REACTIONS (6)
  - MENSTRUATION IRREGULAR [None]
  - NEPHROLITHIASIS [None]
  - PARATHYROID TUMOUR [None]
  - POLYMENORRHOEA [None]
  - RENAL FAILURE [None]
  - UTERINE LEIOMYOMA [None]
